FAERS Safety Report 6034085-6 (Version None)
Quarter: 2009Q1

REPORT INFORMATION
  Report Type: 
  Country: None (occurrence: None)
  Receive Date: 20090108
  Receipt Date: 20081229
  Transmission Date: 20090719
  Serious: Yes (Other)
  Sender: FDA-Public Use
  Company Number: CHPA2008US23578

PATIENT
  Age: 78 Year
  Sex: Male

DRUGS (2)
  1. GAS-X        (SIMETHICONE) DISPERSIBLE TABLET [Suspect]
     Indication: FLATULENCE
     Dosage: 1 DF, QD OR BID OCCASSIONALLY, ORAL
     Route: 048
     Dates: start: 20040101
  2. CHEMOTHERAPEUTICS NOS         (NO INGREDIENTS/SUBSTANCES) [Suspect]

REACTIONS (1)
  - TYPE 2 DIABETES MELLITUS [None]
